FAERS Safety Report 8205211-5 (Version None)
Quarter: 2012Q1

REPORT INFORMATION
  Report Type: 
  Country: None (occurrence: None)
  Receive Date: 20120313
  Receipt Date: 20120209
  Transmission Date: 20120608
  Serious: Yes (Death, Hospitalization)
  Sender: FDA-Public Use
  Company Number: AR-AMGEN-ARGCT2010008630

PATIENT
  Age: 58 Year
  Sex: Male

DRUGS (2)
  1. ENBREL [Suspect]
     Indication: PSORIASIS
     Dosage: 50 MG, WEEKLY
     Route: 058
     Dates: start: 20070501, end: 20100901
  2. REMICADE [Suspect]
     Dosage: UNK
     Dates: start: 20100901

REACTIONS (4)
  - PLATELET COUNT DECREASED [None]
  - EPISTAXIS [None]
  - VIRAL INFECTION [None]
  - EFFUSION [None]
